FAERS Safety Report 4885320-9 (Version None)
Quarter: 2006Q1

REPORT INFORMATION
  Report Type: 
  Country: None (occurrence: None)
  Receive Date: 20060119
  Receipt Date: 20050906
  Transmission Date: 20060701
  Serious: Yes (Other)
  Sender: FDA-Public Use
  Company Number: 2005UW13166

PATIENT
  Age: 80 Year
  Sex: Female

DRUGS (8)
  1. CRESTOR [Suspect]
     Indication: HYPERCHOLESTEROLAEMIA
     Route: 048
     Dates: start: 20050603, end: 20050617
  2. ASPIRIN [Concomitant]
  3. CALCIUM WITH VITAMIN D [Concomitant]
  4. GLUCOSAMINE [Concomitant]
  5. HYDROCHLOROTHIAZIDE [Concomitant]
     Dates: start: 19980101
  6. LOSEC [Concomitant]
     Route: 048
  7. ASCORBIC ACID [Concomitant]
  8. VITAMIN E [Concomitant]

REACTIONS (7)
  - ABDOMINAL PAIN UPPER [None]
  - ALANINE AMINOTRANSFERASE INCREASED [None]
  - ASPARTATE AMINOTRANSFERASE INCREASED [None]
  - BLOOD BILIRUBIN INCREASED [None]
  - BLOOD LACTATE DEHYDROGENASE INCREASED [None]
  - LIPASE INCREASED [None]
  - PANCREATITIS [None]
